FAERS Safety Report 8550482-9 (Version None)
Quarter: 2012Q3

REPORT INFORMATION
  Report Type: 
  Country: None (occurrence: None)
  Receive Date: 20120718
  Receipt Date: 20120703
  Transmission Date: 20120928
  Serious: Yes (Other)
  Sender: FDA-Public Use
  Company Number: 2012MA005981

PATIENT
  Age: 63 Year
  Sex: Female

DRUGS (4)
  1. CARBOPLATIN [Concomitant]
  2. ONDANSETRON [Concomitant]
  3. DEXAMETHASONE [Concomitant]
  4. GEMCITABINE HYDROCHLORIDE [Suspect]
     Indication: BREAST CANCER METASTATIC
     Dosage: 1600 MG;Q3W;IV
     Route: 042
     Dates: start: 20120106

REACTIONS (3)
  - ANXIETY [None]
  - FEELING DRUNK [None]
  - BALANCE DISORDER [None]
